FAERS Safety Report 8600955-5 (Version None)
Quarter: 2012Q3

REPORT INFORMATION
  Report Type: 
  Country: None (occurrence: None)
  Receive Date: 20120817
  Receipt Date: 20120809
  Transmission Date: 20120928
  Serious: Yes (Hospitalization)
  Sender: FDA-Public Use
  Company Number: US-B.I. PHARMACEUTICALS,INC./RIDGEFIELD-2012-BP-01050BP

PATIENT
  Age: 77 Year
  Sex: Male

DRUGS (12)
  1. LISINOPRIL [Concomitant]
  2. COLACE [Concomitant]
  3. FENOFIBRATE [Concomitant]
  4. GABAPENTIN [Concomitant]
  5. ALLOPURINOL [Concomitant]
  6. CELEBREX [Concomitant]
  7. CALCIUM [Concomitant]
  8. GLIPIZIDE [Concomitant]
  9. OMEPRAZOLE [Concomitant]
  10. PRADAXA [Suspect]
     Indication: ANTICOAGULANT THERAPY
     Dosage: 300 MG
     Route: 048
     Dates: start: 20110107, end: 20120106
  11. BUMEX [Concomitant]
  12. SIMVASTATIN [Concomitant]

REACTIONS (3)
  - HAEMOGLOBIN DECREASED [None]
  - UPPER GASTROINTESTINAL HAEMORRHAGE [None]
  - MELAENA [None]
